FAERS Safety Report 4744840-8 (Version None)
Quarter: 2005Q3

REPORT INFORMATION
  Report Type: 
  Country: None (occurrence: None)
  Receive Date: 20050815
  Receipt Date: 20041203
  Transmission Date: 20060218
  Serious: Yes (Other)
  Sender: FDA-Public Use
  Company Number: GB-GLAXOSMITHKLINE-B0359782A

PATIENT
  Sex: Male

DRUGS (3)
  1. SEROXAT [Suspect]
     Route: 065
  2. DOTHIEPIN HYDROCHLORIDE [Suspect]
  3. ALCOHOL [Suspect]

REACTIONS (4)
  - COMPLETED SUICIDE [None]
  - ILL-DEFINED DISORDER [None]
  - OVERDOSE [None]
  - SUICIDAL IDEATION [None]
